FAERS Safety Report 6876612-2 (Version None)
Quarter: 2010Q3

REPORT INFORMATION
  Report Type: 
  Country: None (occurrence: None)
  Receive Date: 20100727
  Receipt Date: 20100712
  Transmission Date: 20110219
  Serious: Yes (Other)
  Sender: FDA-Public Use
  Company Number: US-ELI_LILLY_AND_COMPANY-US201006003585

PATIENT
  Sex: Female

DRUGS (6)
  1. FORTEO [Suspect]
     Indication: OSTEOPOROSIS
     Dosage: 20 UG, DAILY (1/D)
     Dates: start: 20100514
  2. VITAMIN D2 [Concomitant]
     Dosage: UNK, DAILY (1/D)
  3. ANTIHYPERTENSIVES [Concomitant]
  4. DOXITEN BIO [Concomitant]
     Dosage: UNK, AS NEEDED
  5. XANAX [Concomitant]
     Dosage: UNK, AS NEEDED
  6. LORTAB [Concomitant]
     Dosage: UNK, AS NEEDED

REACTIONS (2)
  - ANEURYSM [None]
  - INTRACRANIAL ANEURYSM [None]
